FAERS Safety Report 25629379 (Version 2)
Quarter: 2025Q3

REPORT INFORMATION
  Report Type: Spontaneous
  Country: US (occurrence: US)
  Receive Date: 20250731
  Receipt Date: 20250823
  Transmission Date: 20251021
  Serious: No
  Sender: SANOFI AVENTIS
  Company Number: US-SA-2025SA222324

PATIENT
  Age: 29 Year
  Sex: Female

DRUGS (4)
  1. DUPIXENT [Suspect]
     Active Substance: DUPILUMAB
     Indication: Idiopathic urticaria
     Dosage: 300 MG, QOW
     Route: 058
     Dates: start: 20250620
  2. DUPIXENT [Suspect]
     Active Substance: DUPILUMAB
     Indication: Urticaria chronic
  3. SEASONIQUE [Suspect]
     Active Substance: ETHINYL ESTRADIOL\LEVONORGESTREL
     Indication: Contraception
  4. ZINC OXIDE [Concomitant]
     Active Substance: ZINC OXIDE

REACTIONS (6)
  - Rash erythematous [Unknown]
  - Pruritus [Recovering/Resolving]
  - Skin burning sensation [Unknown]
  - Condition aggravated [Unknown]
  - Urticaria [Unknown]
  - Product use in unapproved indication [Unknown]

NARRATIVE: CASE EVENT DATE: 20250101
